FAERS Safety Report 9635387 (Version 2)
Quarter: 2013Q4

REPORT INFORMATION
  Report Type: Report from Study
  Country: UG (occurrence: UG)
  Receive Date: 20131021
  Receipt Date: 20131105
  Transmission Date: 20140711
  Serious: Yes (Death, Life-Threatening, Hospitalization, Other)
  Sender: FDA-Public Use
  Company Number: UG-GILEAD-2013-0085421

PATIENT
  Age: 30 Year
  Sex: Male

DRUGS (7)
  1. EMTRICITABINE/TENOFOVIR DISOPROXIL FUMARATE [Suspect]
     Indication: HIV INFECTION
     Dosage: UNK
     Route: 065
     Dates: start: 20130926, end: 20131005
  2. EFAVIRENZ [Suspect]
     Indication: HIV INFECTION
     Dosage: UNK
     Route: 065
     Dates: start: 20130926, end: 20131003
  3. RALTEGRAVIR [Suspect]
     Indication: HIV INFECTION
     Dosage: UNK
     Dates: start: 20130926, end: 20131005
  4. LOPERAMIDE [Concomitant]
     Dosage: UNK
     Dates: start: 20130929, end: 20131004
  5. VITAMIN B12 NOS [Concomitant]
     Dosage: UNK
     Dates: start: 20130929, end: 20131005
  6. NEVIRAPINE [Concomitant]
     Indication: HIV INFECTION
     Dosage: UNK
     Dates: start: 20131003, end: 20131005
  7. SEPTRIN [Concomitant]
     Dosage: UNK
     Dates: start: 20130926

REACTIONS (2)
  - Cryptococcosis [Fatal]
  - Dehydration [Not Recovered/Not Resolved]
